FAERS Safety Report 18865845 (Version 1)
Quarter: 2021Q1

REPORT INFORMATION
  Report Type: Spontaneous
  Country: US (occurrence: US)
  Receive Date: 20210209
  Receipt Date: 20210209
  Transmission Date: 20210420
  Serious: Yes (Other)
  Sender: FDA-Public Use
  Company Number: None

PATIENT
  Age: 69 Year
  Sex: Male
  Weight: 72 kg

DRUGS (12)
  1. VIMPAT [Suspect]
     Active Substance: LACOSAMIDE
  2. AMANTADINE. [Concomitant]
     Active Substance: AMANTADINE HYDROCHLORIDE
  3. OMEGA 3 ETHYL ESTERS [Concomitant]
  4. SODIUM BICARBONATE. [Concomitant]
     Active Substance: SODIUM BICARBONATE
  5. VITAMIN C [Concomitant]
     Active Substance: ASCORBIC ACID
  6. VIT. D [Concomitant]
     Active Substance: VITAMIN D NOS
  7. LEVETIRACETAM. [Suspect]
     Active Substance: LEVETIRACETAM
     Indication: SEIZURE
     Route: 048
     Dates: start: 20191113, end: 20201222
  8. LEVOTHYROXINE. [Concomitant]
     Active Substance: LEVOTHYROXINE
  9. CALCIUM [Concomitant]
     Active Substance: CALCIUM
  10. BRIVIACT [Concomitant]
     Active Substance: BRIVARACETAM
  11. CONCERTA [Concomitant]
     Active Substance: METHYLPHENIDATE HYDROCHLORIDE
  12. ATORVASTATIN [Concomitant]
     Active Substance: ATORVASTATIN

REACTIONS (8)
  - Fatigue [None]
  - Tremor [None]
  - Drug ineffective [None]
  - Clumsiness [None]
  - Gait disturbance [None]
  - Cognitive disorder [None]
  - Asthenia [None]
  - Feeling cold [None]

NARRATIVE: CASE EVENT DATE: 20201012
